FAERS Safety Report 7571680-7 (Version None)
Quarter: 2011Q2

REPORT INFORMATION
  Report Type: 
  Country: None (occurrence: None)
  Receive Date: 20110624
  Receipt Date: 20110614
  Transmission Date: 20111010
  Serious: Yes (Hospitalization)
  Sender: FDA-Public Use
  Company Number: US-AMGEN-USASP2011026539

PATIENT
  Age: 60 Year
  Sex: Female
  Weight: 161 kg

DRUGS (29)
  1. ENBREL [Suspect]
     Indication: RHEUMATOID ARTHRITIS
     Dosage: 50 MG, QWK
     Dates: start: 20111012
  2. GLUCOPHAGE [Concomitant]
     Dosage: 500 MG, BID
  3. LORTAB [Concomitant]
     Dosage: 500 MG, Q6H
  4. ACTONEL [Concomitant]
     Dosage: 150 MG, QMO
  5. ULORIC [Concomitant]
     Dosage: 40 MG, QD
  6. LIDODERM [Concomitant]
     Dosage: 1 G, QD
  7. ASPIRIN [Concomitant]
     Dosage: 325 MG, QD
  8. NORTRIPTYLINE HYDROCHLORIDE [Concomitant]
     Dosage: 75 MG, QD
  9. METHOTREXATE SODIUM [Concomitant]
     Dosage: 25 MG/ML, QWK
  10. JANUVIA [Concomitant]
     Dosage: 100 MG, QD
  11. XANAX [Concomitant]
     Dosage: 0.5 MG, BID
  12. IMITREX [Concomitant]
     Dosage: 100 MG, UNK
  13. PREDNISONE [Concomitant]
  14. TREXALL [Concomitant]
     Dosage: 1 MG, QWK
     Dates: start: 20080101
  15. REGLAN [Concomitant]
     Dosage: 10 MG, PRN
  16. FISH OIL [Concomitant]
     Dosage: 1000 MG, QD
  17. VOLTAREN [Concomitant]
     Dosage: UNK UNK, PRN
  18. NITROGLYCERIN [Concomitant]
     Dosage: 0.4 MG, PRN
  19. INSULIN [Concomitant]
  20. NIACIN [Concomitant]
     Dosage: 500 MG, QD
  21. FOLIC ACID [Concomitant]
     Dosage: 1 MG, QD
  22. SYNTHROID [Concomitant]
     Dosage: 100 A?G, QD
  23. PRILOSEC [Concomitant]
     Dosage: 20 MG, BID
  24. LASIX [Concomitant]
     Dosage: 80 MG, QD
  25. OGEN [Concomitant]
     Dosage: 0.75 MG, QD
  26. MEVACOR [Concomitant]
     Dosage: 60 MG, QD
  27. OMEGA 3                            /00931501/ [Concomitant]
     Dosage: UNK UNK, QD
  28. ALPHAGAN P [Concomitant]
     Dosage: 1 ML, BID
  29. KENALOG [Concomitant]
     Dosage: UNK UNK, TID

REACTIONS (11)
  - JOINT RANGE OF MOTION DECREASED [None]
  - JOINT DESTRUCTION [None]
  - OSTEOARTHRITIS [None]
  - PAIN [None]
  - JOINT SWELLING [None]
  - JOINT STIFFNESS [None]
  - TRANSIENT ISCHAEMIC ATTACK [None]
  - ARTHRALGIA [None]
  - WEIGHT DECREASED [None]
  - FALL [None]
  - CONTUSION [None]
